FAERS Safety Report 5484504-9 (Version None)
Quarter: 2007Q4

REPORT INFORMATION
  Report Type: 
  Country: None (occurrence: None)
  Receive Date: 20071010
  Receipt Date: 20070925
  Transmission Date: 20080405
  Serious: Yes (Hospitalization)
  Sender: FDA-Public Use
  Company Number: 2007S1009352

PATIENT
  Age: 22 Year
  Sex: Male

DRUGS (3)
  1. VERAPAMIL [Suspect]
  2. DILTIAZEM [Suspect]
  3. ISOSORBIDE MONONITRATE [Suspect]

REACTIONS (10)
  - ACUTE RESPIRATORY DISTRESS SYNDROME [None]
  - EMPHYSEMA [None]
  - ILEUS PARALYTIC [None]
  - PNEUMOMEDIASTINUM [None]
  - PNEUMOPERITONEUM [None]
  - PNEUMOTHORAX [None]
  - POST PROCEDURAL COMPLICATION [None]
  - SHOCK [None]
  - SUICIDE ATTEMPT [None]
  - THERAPEUTIC AGENT TOXICITY [None]
